FAERS Safety Report 14766975 (Version 1)
Quarter: 2018Q2

REPORT INFORMATION
  Report Type: Spontaneous
  Country: US (occurrence: US)
  Receive Date: 20180417
  Receipt Date: 20180417
  Transmission Date: 20180711
  Serious: Yes (Death, Hospitalization, Other)
  Sender: FDA-Public Use
  Company Number: US-ROCHE-2106816

PATIENT
  Sex: Male

DRUGS (6)
  1. LASIX [Concomitant]
     Active Substance: FUROSEMIDE
  2. RITUXAN [Suspect]
     Active Substance: RITUXIMAB
     Indication: HAIRY CELL LEUKAEMIA
     Route: 042
  3. IMBRUVICA [Suspect]
     Active Substance: IBRUTINIB
     Indication: HAIRY CELL LEUKAEMIA
     Route: 048
  4. ACYCLOVIR. [Concomitant]
     Active Substance: ACYCLOVIR
  5. BENZONATATE. [Concomitant]
     Active Substance: BENZONATATE
  6. CODEINE [Concomitant]
     Active Substance: CODEINE

REACTIONS (5)
  - Drug hypersensitivity [Unknown]
  - Pneumonia [Fatal]
  - Pulmonary oedema [Unknown]
  - Thrombocytopenia [Unknown]
  - Anaemia [Unknown]
